FAERS Safety Report 22528814 (Version 1)
Quarter: 2023Q2

REPORT INFORMATION
  Report Type: Spontaneous
  Country: US (occurrence: US)
  Receive Date: 20230607
  Receipt Date: 20230607
  Transmission Date: 20230722
  Serious: Yes (Hospitalization)
  Sender: FDA-Public Use
  Company Number: US-ORG100016242-2023000172

PATIENT
  Sex: Female

DRUGS (14)
  1. EXPAREL [Suspect]
     Active Substance: BUPIVACAINE
     Indication: Postoperative analgesia
     Dosage: 20 ML (266 MG)
     Route: 050
  2. BUPIVACAINE HYDROCHLORIDE [Suspect]
     Active Substance: BUPIVACAINE HYDROCHLORIDE
     Indication: Surgery
     Dosage: 60 ML (150 MG)
     Route: 050
  3. SODIUM CHLORIDE [Concomitant]
     Active Substance: SODIUM CHLORIDE
     Indication: Surgery
     Dosage: 20 ML, FOR INFRAUMBILICAL INCISION
     Route: 050
  4. SODIUM CHLORIDE [Concomitant]
     Active Substance: SODIUM CHLORIDE
     Indication: Surgery
     Dosage: 120 ML, FOR SUPRAUMBILICAL INCISION
     Route: 050
  5. ACETAMINOPHEN [Concomitant]
     Active Substance: ACETAMINOPHEN
     Indication: Analgesic therapy
     Dosage: PREOPERATIVELY PO 1000 MG
     Route: 048
  6. ACETAMINOPHEN [Concomitant]
     Active Substance: ACETAMINOPHEN
     Indication: Analgesic therapy
     Dosage: POSTOPERATIVELY FOR THE FIRST 24 HOURS, IV 1 G EVERY 8 H
     Route: 042
  7. GABAPENTIN [Concomitant]
     Active Substance: GABAPENTIN
     Indication: Analgesic therapy
     Route: 048
  8. FENTANYL [Concomitant]
     Active Substance: FENTANYL
     Indication: Analgesic therapy
     Dosage: UP TO 350 MCG
     Route: 042
  9. KETOROLAC [Concomitant]
     Active Substance: KETOROLAC TROMETHAMINE
     Indication: Analgesic therapy
     Dosage: IV 15-30 MG, INTRAOPERATIVELY AND FIRST 24H POSTOPERATIVELY, EVERY 6 H
     Route: 042
  10. ONDANSETRON [Concomitant]
     Active Substance: ONDANSETRON
     Indication: Analgesic therapy
     Route: 042
  11. DEXAMETHASONE [Concomitant]
     Active Substance: DEXAMETHASONE
     Indication: Analgesic therapy
     Route: 042
  12. PROPOFOL [Concomitant]
     Active Substance: PROPOFOL
     Indication: Analgesic therapy
     Dosage: 25 MCG/KG/MIN UP TO 100 MCG/KG/MIN
     Route: 041
  13. OXYCODONE [Concomitant]
     Active Substance: OXYCODONE
     Indication: Analgesic therapy
     Dosage: POSTOPERATIVELY, FOR THE FIRST 24 HOURS, 5?10 MG, EVERY 4 H AS NEEDED
     Route: 048
  14. Hydromorfone [Concomitant]
     Indication: Analgesic therapy
     Dosage: POSTOPERATIVELY, FOR THE FIRST 24 HOURS, 2?4 MG, EVERY 4 H AS NEEDED
     Route: 048

REACTIONS (2)
  - Hospitalisation [Unknown]
  - Post procedural complication [Unknown]
